FAERS Safety Report 13074698 (Version 1)
Quarter: 2016Q4

REPORT INFORMATION
  Report Type: Report from Study
  Country: EG (occurrence: EG)
  Receive Date: 20161230
  Receipt Date: 20161230
  Transmission Date: 20170207
  Serious: Yes (Other)
  Sender: FDA-Public Use
  Company Number: EG-CIPLA LTD.-2016EG24532

PATIENT

DRUGS (4)
  1. DOCETAXEL. [Suspect]
     Active Substance: DOCETAXEL
     Dosage: 20 MG/M2, CONCOMITANTLY WITH THORACIC RADIOTHERAPY
     Route: 065
  2. CARBOPLATIN. [Suspect]
     Active Substance: CARBOPLATIN
     Indication: NON-SMALL CELL LUNG CANCER STAGE III
     Dosage: AREA UNDER THE CURVE: 5, FOR 2 CYCLES, AS INDUCTION CHEMOTHERAPY
     Route: 065
  3. DOCETAXEL. [Suspect]
     Active Substance: DOCETAXEL
     Indication: NON-SMALL CELL LUNG CANCER STAGE III
     Dosage: 75 MG/M2, FOR 2 CYCLES, AS INDUCTION CHEMOTHERAPY
     Route: 065
  4. CARBOPLATIN. [Suspect]
     Active Substance: CARBOPLATIN
     Dosage: AREA UNDE THE CURVE: 2, CONCOMITANTLY WITH THORACIC RADIOTHERAPY
     Route: 065

REACTIONS (1)
  - Pneumonitis [Unknown]
